FAERS Safety Report 17203977 (Version 1)
Quarter: 2019Q4

REPORT INFORMATION
  Report Type: Spontaneous
  Country: IT (occurrence: IT)
  Receive Date: 20191226
  Receipt Date: 20191226
  Transmission Date: 20200122
  Serious: Yes (Hospitalization)
  Sender: FDA-Public Use
  Company Number: IT-MYLANLABS-2019M1126963

PATIENT
  Age: 78 Year
  Sex: Male

DRUGS (3)
  1. MEROPENEM. [Suspect]
     Active Substance: MEROPENEM
     Indication: PRODUCT USED FOR UNKNOWN INDICATION
     Dosage: UNK
     Route: 042
  2. VORICONAZOLE. [Suspect]
     Active Substance: VORICONAZOLE
     Indication: PRODUCT USED FOR UNKNOWN INDICATION
     Dosage: UNK
     Route: 042
  3. LINEZOLID. [Suspect]
     Active Substance: LINEZOLID
     Indication: BRONCHOPULMONARY ASPERGILLOSIS
     Dosage: 400 MILLIGRAM, QD
     Route: 042

REACTIONS (1)
  - Hepatocellular injury [Recovering/Resolving]
